FAERS Safety Report 8160103-5 (Version None)
Quarter: 2012Q1

REPORT INFORMATION
  Report Type: 
  Country: None (occurrence: None)
  Receive Date: 20120223
  Receipt Date: 20120216
  Transmission Date: 20120608
  Serious: Yes (Hospitalization, Other)
  Sender: FDA-Public Use
  Company Number: SE-PFIZER INC-2011308245

PATIENT
  Age: 66 Year
  Sex: Male

DRUGS (8)
  1. LOSARTAN [Concomitant]
     Dosage: UNK
  2. OMEPRAZOLE [Concomitant]
     Dosage: UNK
  3. PULMICORT-100 [Concomitant]
     Dosage: UNK
  4. SPIRONOLACTONE [Suspect]
     Indication: ESSENTIAL HYPERTENSION
     Dosage: 25 MG, UNK
     Route: 048
     Dates: start: 20101222, end: 20111105
  5. AMIODARONE HCL [Interacting]
     Dosage: 200 MG, UNK
     Route: 048
     Dates: start: 20111020
  6. BISOPROLOL [Concomitant]
     Dosage: UNK
  7. ASPIRIN [Concomitant]
     Dosage: UNK
  8. ACETYLCYSTEINE [Concomitant]
     Dosage: UNK

REACTIONS (3)
  - DRUG INTERACTION [None]
  - HYPERKALAEMIA [None]
  - HYPONATRAEMIA [None]
